FAERS Safety Report 11244975 (Version 5)
Quarter: 2015Q3

REPORT INFORMATION
  Report Type: Report from Study
  Country: DE (occurrence: DE)
  Receive Date: 20150707
  Receipt Date: 20150930
  Transmission Date: 20151125
  Serious: Yes (Life-Threatening, Hospitalization)
  Sender: FDA-Public Use
  Company Number: PHHO2015DE009757

PATIENT
  Age: 61 Year
  Sex: Male
  Weight: 92 kg

DRUGS (9)
  1. CERTICAN [Suspect]
     Active Substance: EVEROLIMUS
     Indication: LIVER TRANSPLANT
     Dosage: 1 MG, UNK
     Route: 048
     Dates: start: 20150330, end: 20150528
  2. TACROLIMUS. [Suspect]
     Active Substance: TACROLIMUS
     Dosage: DOSE REDUCED
     Route: 048
     Dates: end: 20150713
  3. FRAGMIN [Concomitant]
     Active Substance: DALTEPARIN SODIUM
     Indication: THROMBOSIS PROPHYLAXIS
     Dosage: UNK
     Route: 030
     Dates: start: 20150324
  4. TACROLIMUS. [Suspect]
     Active Substance: TACROLIMUS
     Indication: LIVER TRANSPLANT
     Dosage: 1 MG, UNK
     Route: 048
     Dates: start: 20150330, end: 20150528
  5. PANTOZOL [Concomitant]
     Active Substance: PANTOPRAZOLE SODIUM
     Indication: PROPHYLAXIS
     Dosage: 40 MG, UNK
     Route: 065
  6. CERTICAN [Suspect]
     Active Substance: EVEROLIMUS
     Dosage: DOSE REDUCED
     Route: 048
     Dates: end: 20150713
  7. URBASON [Concomitant]
     Active Substance: METHYLPREDNISOLONE
     Indication: PROPHYLAXIS AGAINST TRANSPLANT REJECTION
     Dosage: 4 MG, UNK
     Route: 065
     Dates: start: 20150323
  8. VALCYTE [Suspect]
     Active Substance: VALGANCICLOVIR HYDROCHLORIDE
     Indication: CYTOMEGALOVIRUS INFECTION
     Route: 042
  9. COTRIM D.S. [Concomitant]
     Active Substance: SULFAMETHOXAZOLE\TRIMETHOPRIM
     Indication: PROPHYLAXIS
     Dosage: 480 MG, UNK
     Route: 065
     Dates: start: 20150321

REACTIONS (9)
  - Nausea [Recovered/Resolved]
  - Ascites [Unknown]
  - Pleural effusion [Unknown]
  - Fungal infection [Recovered/Resolved]
  - Vomiting [Recovered/Resolved]
  - Acute kidney injury [Unknown]
  - Sepsis [Recovered/Resolved with Sequelae]
  - Pancytopenia [Recovered/Resolved]
  - Pneumonia [Unknown]

NARRATIVE: CASE EVENT DATE: 20150520
